FAERS Safety Report 23064728 (Version 1)
Quarter: 2023Q4

REPORT INFORMATION
  Report Type: Report from Study
  Country: US (occurrence: US)
  Receive Date: 20231013
  Receipt Date: 20231013
  Transmission Date: 20240110
  Serious: No
  Sender: FDA-Public Use
  Company Number: US-INCYTE CORPORATION-2023IN009241

PATIENT

DRUGS (1)
  1. JAKAFI [Suspect]
     Active Substance: RUXOLITINIB
     Indication: Polycythaemia vera
     Dosage: 10 MILLIGRAM ONCE A DAY, AND THEN ON TUESDAY, THURSDAY, SATURDAY, AND SUNDAY I TAKE IT TWICE A DAY.
     Route: 048

REACTIONS (3)
  - Oxygen saturation decreased [Unknown]
  - Intentional product use issue [Unknown]
  - Product availability issue [Unknown]
